FAERS Safety Report 8923481 (Version 1)
Quarter: 2012Q4

REPORT INFORMATION
  Report Type: Spontaneous
  Country: ES (occurrence: None)
  Receive Date: 20121114
  Receipt Date: 20121114
  Transmission Date: 20130627
  Serious: Yes (Hospitalization, Other)
  Sender: FDA-Public Use
  Company Number: 2012MA013009

PATIENT
  Age: 64 Year
  Sex: Male

DRUGS (7)
  1. CARBAMAZEPINE [Suspect]
     Indication: DIABETIC NEUROPATHY
  2. AMITRIPTYLINE [Suspect]
     Indication: DIABETIC NEUROPATHY
  3. INSULIN GARGLINE [Concomitant]
  4. REPAGLINIDE [Concomitant]
  5. SIMVASTATIN [Concomitant]
  6. TELMISARTAN [Concomitant]
  7. ACETYLSALICYLIC ACID [Concomitant]

REACTIONS (10)
  - Inappropriate antidiuretic hormone secretion [None]
  - Constipation [None]
  - Blood glucose increased [None]
  - Blood chloride decreased [None]
  - Pleural effusion [None]
  - Blood thyroid stimulating hormone increased [None]
  - Cerebral atrophy [None]
  - Hepatic steatosis [None]
  - Blood antidiuretic hormone increased [None]
  - Pericardial effusion [None]
